FAERS Safety Report 19584542 (Version 1)
Quarter: 2021Q3

REPORT INFORMATION
  Report Type: Spontaneous
  Country: US (occurrence: US)
  Receive Date: 20210720
  Receipt Date: 20210720
  Transmission Date: 20211014
  Serious: Yes (Hospitalization)
  Sender: FDA-Public Use
  Company Number: US-TARO-2020TAR01354

PATIENT

DRUGS (1)
  1. BETAMETHASONE/CLOTRIMAZOLE [Suspect]
     Active Substance: BETAMETHASONE DIPROPIONATE\CLOTRIMAZOLE
     Dosage: BID, APPLY 2X / DAY TO THE AFFECTED AREA FOR 7 DAYS AND THEN STOP FOR 5 DAYS AND REPEAT
     Route: 061
     Dates: start: 20191010

REACTIONS (3)
  - Skin irritation [Recovered/Resolved]
  - Off label use [Unknown]
  - Skin discolouration [Recovered/Resolved]

NARRATIVE: CASE EVENT DATE: 20191012
